FAERS Safety Report 8546933 (Version 2)
Quarter: 2013Q2

REPORT INFORMATION
  Report Type: Spontaneous
  Country: CA (occurrence: CA)
  Receive Date: 20120504
  Receipt Date: 20130426
  Transmission Date: 20140414
  Serious: Yes (Other)
  Sender: FDA-Public Use
  Company Number: CA-JNJFOC-20120412873

PATIENT
  Age: 36 Year
  Sex: Male
  Weight: 78 kg

DRUGS (4)
  1. REMICADE [Suspect]
     Indication: ANKYLOSING SPONDYLITIS
     Route: 042
     Dates: start: 20120425, end: 20120425
  2. REMICADE [Suspect]
     Indication: ANKYLOSING SPONDYLITIS
     Dosage: 0, 2 AND 6
     Route: 042
     Dates: start: 20120411
  3. REMICADE [Suspect]
     Indication: ANKYLOSING SPONDYLITIS
     Route: 042
     Dates: start: 20081222, end: 20091112
  4. MOBICOX [Concomitant]
     Indication: ANKYLOSING SPONDYLITIS
     Route: 065
     Dates: start: 20081105

REACTIONS (5)
  - Oxygen saturation decreased [Recovered/Resolved]
  - Chest pain [Recovered/Resolved]
  - Infusion related reaction [Recovered/Resolved]
  - Dyspnoea [Recovered/Resolved]
  - Flushing [Recovered/Resolved]
